FAERS Safety Report 25267617 (Version 4)
Quarter: 2025Q3

REPORT INFORMATION
  Report Type: Other
  Country: GB (occurrence: GB)
  Receive Date: 20250505
  Receipt Date: 20250821
  Transmission Date: 20251020
  Serious: Yes (Congenital Anomaly, Other)
  Sender: MACLEODS
  Company Number: GB-MACLEODS PHARMA-MAC2025052818

PATIENT

DRUGS (3)
  1. EMTRICITABINE\TENOFOVIR [Suspect]
     Active Substance: EMTRICITABINE\TENOFOVIR
     Indication: Product used for unknown indication
     Dosage: 1 COURSE OF TABS/CAP, NO PRIOR TO CONCEPTION, EXPOSURE DURING FIRST TRIMESTER
     Route: 064
     Dates: start: 20240912, end: 20241201
  2. ALBUTEROL [Suspect]
     Active Substance: ALBUTEROL
     Indication: Product used for unknown indication
     Route: 065
  3. BECLOMETHASONE DIPROPIONATE [Suspect]
     Active Substance: BECLOMETHASONE DIPROPIONATE
     Indication: Product used for unknown indication
     Route: 065

REACTIONS (4)
  - Fallot^s tetralogy [Unknown]
  - Aortic valve prolapse [Unknown]
  - DiGeorge^s syndrome [Unknown]
  - Foetal exposure during pregnancy [Unknown]
